FAERS Safety Report 23835026 (Version 4)
Quarter: 2025Q2

REPORT INFORMATION
  Report Type: Report from Study
  Country: JP (occurrence: JP)
  Receive Date: 20240509
  Receipt Date: 20250609
  Transmission Date: 20250717
  Serious: No
  Sender: ABBVIE
  Company Number: JP-ABBVIE-5751674

PATIENT
  Age: 63 Year
  Sex: Male

DRUGS (3)
  1. VENCLEXTA [Suspect]
     Active Substance: VENETOCLAX
     Indication: Acute myeloid leukaemia
     Route: 048
  2. CYTARABINE [Concomitant]
     Active Substance: CYTARABINE
     Indication: Acute myeloid leukaemia
  3. AZACITIDINE [Suspect]
     Active Substance: AZACITIDINE
     Indication: Acute myeloid leukaemia
     Route: 065

REACTIONS (2)
  - Nausea [Unknown]
  - Neutropenia [Unknown]
